FAERS Safety Report 8532282 (Version 4)
Quarter: 2013Q1

REPORT INFORMATION
  Report Type: Report from Study
  Country: US (occurrence: US)
  Receive Date: 20120426
  Receipt Date: 20130129
  Transmission Date: 20140127
  Serious: Yes (Other)
  Sender: FDA-Public Use
  Company Number: US-JNJFOC-20120408366

PATIENT
  Age: 16 Year
  Sex: Male
  Weight: 120 kg

DRUGS (11)
  1. REMICADE [Suspect]
     Indication: CROHN^S DISEASE
     Route: 042
     Dates: start: 20100603
  2. 5-ASA [Concomitant]
     Route: 048
  3. IRON [Concomitant]
  4. VITAMIN [Concomitant]
  5. CONCERTA [Concomitant]
  6. CALCIUM CARBONATE [Concomitant]
  7. VITAMIN D [Concomitant]
  8. VITAMIN B-12 [Concomitant]
  9. BENADRYL [Concomitant]
  10. TYLENOL [Concomitant]
  11. EYE DROPS NOS [Concomitant]

REACTIONS (1)
  - Non-alcoholic steatohepatitis [Recovered/Resolved with Sequelae]
